FAERS Safety Report 4667743-6 (Version None)
Quarter: 2005Q2

REPORT INFORMATION
  Report Type: 
  Country: None (occurrence: None)
  Receive Date: 20050520
  Receipt Date: 20050414
  Transmission Date: 20051028
  Serious: Yes (Death)
  Sender: FDA-Public Use
  Company Number: US-GLAXOSMITHKLINE-A0554235A

PATIENT
  Age: 21 Year
  Sex: Female

DRUGS (4)
  1. LAMICTAL [Suspect]
     Indication: EPILEPSY
  2. TEGRETOL [Concomitant]
  3. TRILEPTAL [Concomitant]
  4. PROPRANOLOL [Concomitant]

REACTIONS (1)
  - SUDDEN DEATH [None]
